FAERS Safety Report 18241871 (Version 2)
Quarter: 2020Q3

REPORT INFORMATION
  Report Type: Spontaneous
  Country: PH (occurrence: PH)
  Receive Date: 20200908
  Receipt Date: 20200914
  Transmission Date: 20201103
  Serious: Yes (Death, Other)
  Sender: FDA-Public Use
  Company Number: PH-ROCHE-2673001

PATIENT
  Age: 69 Year
  Sex: Male
  Weight: 99 kg

DRUGS (1)
  1. ACTEMRA [Suspect]
     Active Substance: TOCILIZUMAB
     Indication: COVID-19 PNEUMONIA
     Dosage: SINGLE DOSE
     Route: 042
     Dates: start: 20200817, end: 20200817

REACTIONS (9)
  - Lung infiltration [Unknown]
  - Endotracheal intubation [Unknown]
  - Intentional product use issue [Unknown]
  - Hypoxia [Unknown]
  - Mechanical ventilation [Unknown]
  - Off label use [Unknown]
  - Death [Fatal]
  - Dyspnoea [Unknown]
  - Haemoperfusion [Unknown]
